FAERS Safety Report 5962586-5 (Version None)
Quarter: 2008Q4

REPORT INFORMATION
  Report Type: 
  Country: None (occurrence: None)
  Receive Date: 20081121
  Receipt Date: 20081112
  Transmission Date: 20090506
  Serious: Yes (Death)
  Sender: FDA-Public Use
  Company Number: JP-PFIZER INC-2008096126

PATIENT
  Age: 2 Month
  Sex: Female

DRUGS (1)
  1. REVATIO [Suspect]
     Dosage: DAILY DOSE:2.5MG
     Route: 048
     Dates: start: 20081016, end: 20081024

REACTIONS (1)
  - TRISOMY 18 [None]
